FAERS Safety Report 5822454-6 (Version None)
Quarter: 2008Q3

REPORT INFORMATION
  Report Type: 
  Country: None (occurrence: None)
  Receive Date: 20080721
  Receipt Date: 20080708
  Transmission Date: 20090109
  Serious: Yes (Other)
  Sender: FDA-Public Use
  Company Number: 2008001615

PATIENT
  Age: 61 Year
  Sex: Female

DRUGS (18)
  1. ERLOTINIB (ERLOTINIB) (TABLET) (ERLOTINIB) [Suspect]
     Indication: LUNG ADENOCARCINOMA
     Dosage: 150 MG QD ORAL
     Route: 048
     Dates: start: 20080422
  2. CARBOPLATIN [Concomitant]
  3. PACLITAXEL [Concomitant]
  4. TAXOTERE [Concomitant]
  5. TS-1 [Concomitant]
  6. GEMZAR [Concomitant]
  7. CISPLATIN [Concomitant]
  8. NAVELBINE [Concomitant]
  9. BETAMETHASONE [Concomitant]
  10. MUCOSTA (REBAMIPIDE) [Concomitant]
  11. ZANTAC [Concomitant]
  12. NOVAMIN (PROCHLORPERAZINE) [Concomitant]
  13. MS CONTIN [Concomitant]
  14. MORPHINE [Concomitant]
  15. ENSURE LIQUID [Concomitant]
  16. MAGNESIUM OXIDE (MAGNESIUM OXIDE) [Concomitant]
  17. DEPAS (ETIZOLAM) [Concomitant]
  18. LORAZEPAM [Concomitant]

REACTIONS (3)
  - BLOOD LACTATE DEHYDROGENASE INCREASED [None]
  - DISEASE PROGRESSION [None]
  - METASTASES TO LIVER [None]
